FAERS Safety Report 6147301-7 (Version None)
Quarter: 2009Q2

REPORT INFORMATION
  Report Type: 
  Country: None (occurrence: None)
  Receive Date: 20090408
  Receipt Date: 20090331
  Transmission Date: 20091009
  Serious: Yes (Other)
  Sender: FDA-Public Use
  Company Number: JP-PFIZER INC-2009177411

PATIENT

DRUGS (7)
  1. ZOLOFT [Suspect]
     Indication: DEPRESSION
     Dosage: UNK
     Route: 048
     Dates: start: 20090110, end: 20090110
  2. PAXIL [Suspect]
     Indication: DEPRESSION
     Route: 048
     Dates: start: 20081213, end: 20081220
  3. DEPAS [Concomitant]
     Dosage: UNK
     Route: 051
     Dates: start: 20041015, end: 20090130
  4. MYSLEE [Concomitant]
     Dosage: UNK
     Route: 048
     Dates: start: 20060511
  5. BROTIZOLAM [Concomitant]
     Dosage: UNK
     Route: 048
     Dates: start: 20050510
  6. EVAMYL [Concomitant]
     Dosage: UNK
     Route: 048
     Dates: start: 20061023
  7. TOLEDOMIN [Concomitant]
     Route: 048
     Dates: start: 20041015, end: 20090109

REACTIONS (2)
  - EYELID OEDEMA [None]
  - EYELID PTOSIS [None]
